FAERS Safety Report 13688354 (Version 1)
Quarter: 2017Q2

REPORT INFORMATION
  Report Type: Spontaneous
  Country: US (occurrence: US)
  Receive Date: 20170623
  Receipt Date: 20170623
  Transmission Date: 20170830
  Serious: No
  Sender: FDA-Public Use
  Company Number: None

PATIENT
  Age: 69 Year
  Sex: Male

DRUGS (4)
  1. XALKORI [Suspect]
     Active Substance: CRIZOTINIB
     Indication: LUNG NEOPLASM MALIGNANT
     Route: 048
     Dates: start: 20170616
  2. XALKORI [Suspect]
     Active Substance: CRIZOTINIB
     Indication: BRAIN CANCER METASTATIC
     Route: 048
     Dates: start: 20170616
  3. XALKORI [Suspect]
     Active Substance: CRIZOTINIB
     Indication: PRODUCT USED FOR UNKNOWN INDICATION
     Route: 048
     Dates: start: 20170616
  4. DILANTIN [Concomitant]
     Active Substance: PHENYTOIN

REACTIONS (1)
  - Seizure [None]

NARRATIVE: CASE EVENT DATE: 20170622
